FAERS Safety Report 7986645-0 (Version None)
Quarter: 2011Q4

REPORT INFORMATION
  Report Type: 
  Country: None (occurrence: None)
  Receive Date: 20111216
  Receipt Date: 20110210
  Transmission Date: 20120403
  Serious: No
  Sender: FDA-Public Use
  Company Number: US-BRISTOL-MYERS SQUIBB COMPANY-15545536

PATIENT
  Age: 11 Year

DRUGS (1)
  1. ABILIFY [Suspect]
     Dosage: DOSE REDUCED THEN BACK TO 5MG
     Route: 048

REACTIONS (2)
  - WEIGHT INCREASED [None]
  - DRUG EFFECT DECREASED [None]
